FAERS Safety Report 21940344 (Version 1)
Quarter: 2023Q1

REPORT INFORMATION
  Report Type: Report from Study
  Country: US (occurrence: US)
  Receive Date: 20230201
  Receipt Date: 20230201
  Transmission Date: 20230418
  Serious: No
  Sender: FDA-Public Use
  Company Number: US-EXELIXIS-CABO-22050582

PATIENT
  Age: 71 Year
  Sex: Female

DRUGS (16)
  1. CABOMETYX [Suspect]
     Active Substance: CABOZANTINIB S-MALATE
     Indication: Gastrointestinal stromal tumour
     Dosage: 60 MG, QD
     Dates: start: 20220304, end: 20220420
  2. CABOMETYX [Suspect]
     Active Substance: CABOZANTINIB S-MALATE
     Dosage: 40 MG
  3. ROSUVASTATIN [Suspect]
     Active Substance: ROSUVASTATIN
     Indication: Product used for unknown indication
     Dosage: UNK
  4. BYDUREON [Concomitant]
     Active Substance: EXENATIDE
     Dosage: UNK
  5. GABAPENTIN [Concomitant]
     Active Substance: GABAPENTIN
     Dosage: UNK
  6. HYDROCHLOROTHIAZIDE [Concomitant]
     Active Substance: HYDROCHLOROTHIAZIDE
     Dosage: UNK
  7. LISINOPRIL [Concomitant]
     Active Substance: LISINOPRIL
     Dosage: UNK
  8. MELOXICAM [Concomitant]
     Active Substance: MELOXICAM
     Dosage: UNK
  9. PRILOSEC [Concomitant]
     Active Substance: OMEPRAZOLE MAGNESIUM
     Dosage: UNK
  10. TRAMADOL [Concomitant]
     Active Substance: TRAMADOL
     Dosage: UNK
  11. TRULICITY [Concomitant]
     Active Substance: DULAGLUTIDE
     Dosage: UNK
  12. TRESIBA [Concomitant]
     Active Substance: INSULIN DEGLUDEC
     Dosage: UNK
  13. OMEPRAZOLE [Concomitant]
     Active Substance: OMEPRAZOLE
     Dosage: UNK
  14. LOSARTAN [Concomitant]
     Active Substance: LOSARTAN
     Dosage: UNK
  15. VITAMIN D3 [Concomitant]
     Active Substance: CHOLECALCIFEROL
     Dosage: UNK
  16. VITAMINS [Concomitant]
     Active Substance: VITAMINS
     Dosage: UNK

REACTIONS (18)
  - Nasal ulcer [Not Recovered/Not Resolved]
  - Skin ulcer [Unknown]
  - Joint swelling [Unknown]
  - Tooth disorder [Unknown]
  - Blister [Unknown]
  - Fatigue [Unknown]
  - Constipation [Recovered/Resolved]
  - Blood pressure increased [Recovering/Resolving]
  - Hepatic enzyme increased [Unknown]
  - Taste disorder [Not Recovered/Not Resolved]
  - Diarrhoea [Unknown]
  - Rash macular [Unknown]
  - Dizziness [Recovering/Resolving]
  - Arthralgia [Unknown]
  - Nausea [Unknown]
  - Headache [Recovering/Resolving]
  - Pain in extremity [Unknown]
  - Off label use [Unknown]

NARRATIVE: CASE EVENT DATE: 20220325
